FAERS Safety Report 8733939 (Version 2)
Quarter: 2012Q4

REPORT INFORMATION
  Report Type: 
  Country: US (occurrence: US)
  Receive Date: 20120821
  Receipt Date: 20121207
  Transmission Date: 20130627
  Serious: No
  Sender: FDA-Public Use
  Company Number: US-009507513-1207USA007007

PATIENT
  Sex: Male
  Weight: 78.5 kg

DRUGS (2)
  1. LOTRIMIN ULTRA [Suspect]
     Indication: TINEA PEDIS
     Dosage: UNK, bid
     Route: 061
     Dates: start: 201204, end: 2012
  2. LOTRIMIN ULTRA [Suspect]
     Dosage: UNK

REACTIONS (3)
  - Hypersensitivity [Unknown]
  - Rash [Unknown]
  - Urticaria [Recovering/Resolving]
